FAERS Safety Report 8155876-1 (Version None)
Quarter: 2012Q1

REPORT INFORMATION
  Report Type: 
  Country: None (occurrence: None)
  Receive Date: 20120103
  Receipt Date: 20111027
  Transmission Date: 20120608
  Serious: No
  Sender: FDA-Public Use
  Company Number: AE-2011-002772

PATIENT
  Age: 61 Year
  Sex: Female
  Weight: 63.9572 kg

DRUGS (8)
  1. INCIVEK [Suspect]
     Dosage: 2250 MG (750 MG, 1 IN 8 HR), ORAL
     Route: 048
     Dates: start: 20110805, end: 20111027
  2. ZOFRAN [Concomitant]
  3. ATARAX [Concomitant]
  4. PEGINTERFERON (PEGINTERFERON ALFA-2A) [Concomitant]
  5. RIBAVIRIN [Concomitant]
  6. SYNTHROID [Concomitant]
  7. CIPRO [Concomitant]
  8. TRAMADOL HCL [Concomitant]

REACTIONS (4)
  - ANAEMIA [None]
  - HEADACHE [None]
  - NAUSEA [None]
  - RASH PRURITIC [None]
